FAERS Safety Report 24790071 (Version 3)
Quarter: 2025Q1

REPORT INFORMATION
  Report Type: Report from Study
  Country: US (occurrence: US)
  Receive Date: 20241230
  Receipt Date: 20250122
  Transmission Date: 20250409
  Serious: Yes (Hospitalization)
  Sender: PFIZER
  Company Number: US-PFIZER INC-PV202400155124

PATIENT
  Age: 71 Year
  Sex: Female
  Weight: 66.3 kg

DRUGS (7)
  1. NIRMATRELVIR\RITONAVIR [Suspect]
     Active Substance: NIRMATRELVIR\RITONAVIR
     Indication: Post-acute COVID-19 syndrome
     Dosage: BID
     Route: 048
     Dates: start: 20240524, end: 20240531
  2. INVESTIGATIONAL PRODUCT [Suspect]
     Active Substance: INVESTIGATIONAL PRODUCT
     Indication: Post-acute COVID-19 syndrome
     Dosage: BID
     Route: 048
     Dates: start: 20240524, end: 20240531
  3. SULFAMETHOXAZOLE\TRIMETHOPRIM [Suspect]
     Active Substance: SULFAMETHOXAZOLE\TRIMETHOPRIM
     Indication: Cellulitis
     Dosage: [TRIMETHOPRIM 160MG/SULFAMETHOXAZOLE 800MG], 2X/DAY
     Route: 048
     Dates: start: 20241007, end: 20241009
  4. BUPROPION HYDROCHLORIDE [Concomitant]
     Active Substance: BUPROPION HYDROCHLORIDE
     Dates: start: 20061228
  5. AMLODIPINE [Concomitant]
     Active Substance: AMLODIPINE BESYLATE
     Dates: start: 20140507
  6. COBICISTAT\ELVITEGRAVIR\EMTRICITABINE\TENOFOVIR [Concomitant]
     Active Substance: COBICISTAT\ELVITEGRAVIR\EMTRICITABINE\TENOFOVIR
     Dates: start: 20170207
  7. VANCOMYCIN [Concomitant]
     Active Substance: VANCOMYCIN
     Dates: start: 20241007, end: 20241007

REACTIONS (1)
  - Mental status changes [Recovered/Resolved]

NARRATIVE: CASE EVENT DATE: 20241009
